FAERS Safety Report 19411269 (Version 1)
Quarter: 2021Q2

REPORT INFORMATION
  Report Type: Spontaneous
  Country: CA (occurrence: CA)
  Receive Date: 20210614
  Receipt Date: 20210614
  Transmission Date: 20210717
  Serious: Yes (Other)
  Sender: FDA-Public Use
  Company Number: CA-GLAXOSMITHKLINE-CA2021AMR127569

PATIENT
  Age: 80 Year
  Sex: Male
  Weight: 71 kg

DRUGS (4)
  1. BUDESONIDE + FORMOTEROL FUMARATE [Suspect]
     Active Substance: BUDESONIDE\FORMOTEROL FUMARATE
     Indication: PNEUMONIA
     Dosage: 2 PUFF(S), QD 2 EVERY 1 DAYS
     Route: 045
  2. SIMPONI [Suspect]
     Active Substance: GOLIMUMAB
     Indication: RHEUMATOID ARTHRITIS
     Dosage: 50 MG, Z 1 EVERY 1 MONTHS
     Route: 058
  3. SALBUTAMOL [Suspect]
     Active Substance: ALBUTEROL
     Indication: PNEUMONIA
     Dosage: 2 PUFF(S), QD 2 EVERY 1 DAYS
     Route: 045
  4. METHOTREXATE. [Concomitant]
     Active Substance: METHOTREXATE
     Indication: RHEUMATOID ARTHRITIS
     Dosage: 25 MG
     Route: 058

REACTIONS (2)
  - Oral candidiasis [Recovered/Resolved]
  - Pneumonia [Recovered/Resolved]
